FAERS Safety Report 6687311-4 (Version None)
Quarter: 2010Q2

REPORT INFORMATION
  Report Type: 
  Country: None (occurrence: None)
  Receive Date: 20100419
  Receipt Date: 20100413
  Transmission Date: 20101027
  Serious: Yes (Hospitalization)
  Sender: FDA-Public Use
  Company Number: US-GILEAD-2010-0028311

PATIENT
  Sex: Female
  Weight: 72.7 kg

DRUGS (16)
  1. LETAIRIS [Suspect]
     Indication: PULMONARY ARTERIAL HYPERTENSION
     Route: 048
     Dates: start: 20090116
  2. ADCIRCA [Concomitant]
  3. REMODULIN [Concomitant]
  4. COUMADIN [Concomitant]
  5. ASPIRIN [Concomitant]
  6. LASIX [Concomitant]
  7. SPIRONOLACT [Concomitant]
  8. AMITRIPTYLINE HCL [Concomitant]
  9. NEURONTIN [Concomitant]
  10. COLACE [Concomitant]
  11. MIRALAX [Concomitant]
  12. PRILOSEC [Concomitant]
  13. OXYCONTIN [Concomitant]
  14. MOTRIN [Concomitant]
  15. KLOR-CON [Concomitant]
  16. IRON [Concomitant]

REACTIONS (3)
  - CHEST PAIN [None]
  - FLUID OVERLOAD [None]
  - OEDEMA PERIPHERAL [None]
